FAERS Safety Report 5061927-3 (Version None)
Quarter: 2006Q3

REPORT INFORMATION
  Report Type: 
  Country: None (occurrence: None)
  Receive Date: 20060720
  Receipt Date: 20060720
  Transmission Date: 20061208
  Serious: Yes (Disabling)
  Sender: FDA-Public Use
  Company Number: None

PATIENT
  Age: 72 Year
  Sex: Female
  Weight: 98.8842 kg

DRUGS (4)
  1. COUMADIN [Suspect]
     Indication: THROMBOSIS PROPHYLAXIS
     Dosage: 2 MG OTO ORAL
     Route: 048
     Dates: start: 20060509
  2. HYDROMORPHONE HCL [Concomitant]
  3. BUPIVACAINE [Concomitant]
  4. ASPIRIN [Concomitant]

REACTIONS (2)
  - DIPLEGIA [None]
  - EXTRADURAL HAEMATOMA [None]
